FAERS Safety Report 6015466-3 (Version None)
Quarter: 2008Q4

REPORT INFORMATION
  Report Type: 
  Country: None (occurrence: None)
  Receive Date: 20081218
  Receipt Date: 20081202
  Transmission Date: 20090506
  Serious: Yes (Death)
  Sender: FDA-Public Use
  Company Number: KV200800764

PATIENT
  Age: 92 Year
  Sex: Male

DRUGS (1)
  1. ISOSORBIDE MONONITRATE [Suspect]
     Indication: CARDIAC FAILURE CONGESTIVE
     Dosage: 30 MG, QD, ORAL
     Route: 048
     Dates: start: 20040101, end: 20080101

REACTIONS (3)
  - ARRHYTHMIA [None]
  - PRODUCT QUALITY ISSUE [None]
  - RESPIRATORY ARREST [None]
